FAERS Safety Report 4592783-5 (Version None)
Quarter: 2005Q1

REPORT INFORMATION
  Report Type: 
  Country: None (occurrence: None)
  Receive Date: 20050222
  Receipt Date: 20050202
  Transmission Date: 20050727
  Serious: Yes (Hospitalization)
  Sender: FDA-Public Use
  Company Number: 105997ISR

PATIENT
  Age: 49 Year
  Sex: Male

DRUGS (8)
  1. FLUOROURACIL SODIUM [Suspect]
     Indication: ANAL CANCER
  2. FORMOTEROL [Concomitant]
  3. SYMBICORT (FORMOTEROL/BUDESONIDE) [Concomitant]
  4. MOMETASONE FUROATE [Concomitant]
  5. SODIUM PICOSULFATE [Concomitant]
  6. DICLOFENAC [Concomitant]
  7. LACTULOSE [Concomitant]
  8. PANTOPRAZOLE [Concomitant]

REACTIONS (2)
  - DIARRHOEA [None]
  - MUCOSAL INFLAMMATION [None]
